FAERS Safety Report 24913640 (Version 1)
Quarter: 2025Q1

REPORT INFORMATION
  Report Type: Spontaneous
  Country: HR (occurrence: HR)
  Receive Date: 20250201
  Receipt Date: 20250201
  Transmission Date: 20250408
  Serious: Yes (Other)
  Sender: MERCK
  Company Number: HR-009507513-2501HRV010394

PATIENT
  Age: 73 Year
  Sex: Male

DRUGS (2)
  1. KEYTRUDA [Suspect]
     Active Substance: PEMBROLIZUMAB
     Indication: Metastatic malignant melanoma
     Dosage: 2 MILLIGRAM/KILOGRAM, Q3W
     Dates: start: 20180705, end: 20200723
  2. KEYTRUDA [Suspect]
     Active Substance: PEMBROLIZUMAB
     Dosage: 200 MILLIGRAM, Q3W
     Dates: start: 20230802, end: 20241016

REACTIONS (9)
  - Malignant neoplasm progression [Unknown]
  - Tumour necrosis [Unknown]
  - Therapy partial responder [Unknown]
  - Fatigue [Unknown]
  - Vertigo [Unknown]
  - Fatigue [Unknown]
  - Therapy partial responder [Unknown]
  - Excessive granulation tissue [Unknown]
  - Therapy cessation [Unknown]

NARRATIVE: CASE EVENT DATE: 20200723
